FAERS Safety Report 6295481-5 (Version None)
Quarter: 2009Q3

REPORT INFORMATION
  Report Type: 
  Country: None (occurrence: None)
  Receive Date: 20090731
  Receipt Date: 20090723
  Transmission Date: 20100115
  Serious: Yes (Death)
  Sender: FDA-Public Use
  Company Number: 20097147

PATIENT
  Age: 62 Year
  Sex: Male

DRUGS (11)
  1. BACLOFEN [Suspect]
     Indication: MUSCLE SPASTICITY
     Dosage: 12 MCG, DAILY, INTRATHECAL
     Route: 037
     Dates: start: 20080620
  2. LUVOX [Concomitant]
  3. SYLAZEPAM [Concomitant]
  4. PLETAL [Concomitant]
  5. RADEN [Concomitant]
  6. ASPIRIN [Concomitant]
  7. VESICARE [Concomitant]
  8. BISOLVON [Concomitant]
  9. DANTRIUM [Concomitant]
  10. GRAMALIL [Concomitant]
  11. ASCOMP [Concomitant]

REACTIONS (5)
  - ASTHENIA [None]
  - PNEUMONIA ASPIRATION [None]
  - PROCEDURAL COMPLICATION [None]
  - PROCEDURAL HYPOTENSION [None]
  - VOMITING [None]
